FAERS Safety Report 8850767 (Version 1)
Quarter: 2012Q4

REPORT INFORMATION
  Report Type: 
  Country: US (occurrence: US)
  Receive Date: 20121019
  Receipt Date: 20121019
  Transmission Date: 20130627
  Serious: Yes (Hospitalization, Other)
  Sender: FDA-Public Use
  Company Number: US-ELI_LILLY_AND_COMPANY-US201210004410

PATIENT
  Age: 79 Year
  Sex: Female

DRUGS (10)
  1. FORTEO [Suspect]
     Indication: OSTEOPOROSIS
     Dosage: 20 ug, qd
     Dates: start: 20120731, end: 20120812
  2. COUMADIN [Concomitant]
  3. CITALOPRAM [Concomitant]
  4. LORAZEPAM [Concomitant]
  5. MIRTAZAPIN [Concomitant]
  6. SIMVASTATIN [Concomitant]
  7. ANASTROZOLE [Concomitant]
  8. COSOPT [Concomitant]
  9. TRAVATAN Z [Concomitant]
  10. RESTASIS [Concomitant]

REACTIONS (3)
  - Pelvic fracture [Unknown]
  - Upper limb fracture [Unknown]
  - Fall [Unknown]
